FAERS Safety Report 4770203-5 (Version None)
Quarter: 2005Q3

REPORT INFORMATION
  Report Type: 
  Country: None (occurrence: None)
  Receive Date: 20050915
  Receipt Date: 20050906
  Transmission Date: 20060218
  Serious: Yes (Other)
  Sender: FDA-Public Use
  Company Number: FR-JNJFOC-20050901156

PATIENT
  Age: 18 Year
  Sex: Female

DRUGS (7)
  1. RISPERDAL [Suspect]
     Indication: DRUG USE FOR UNKNOWN INDICATION
     Route: 048
  2. EPITOMAX [Concomitant]
  3. EPITOMAX [Concomitant]
  4. EPITOMAX [Concomitant]
  5. EPITOMAX [Concomitant]
  6. EPITOMAX [Concomitant]
  7. DEPAKENE [Concomitant]
     Route: 065

REACTIONS (1)
  - LEUKOPENIA [None]
